FAERS Safety Report 10209947 (Version 2)
Quarter: 2014Q2

REPORT INFORMATION
  Report Type: Spontaneous
  Country: US (occurrence: US)
  Receive Date: 20140602
  Receipt Date: 20140610
  Transmission Date: 20141212
  Serious: Yes (Other)
  Sender: FDA-Public Use
  Company Number: US-ROCHE-1411160

PATIENT
  Sex: Female
  Weight: 92.16 kg

DRUGS (26)
  1. PERJETA [Suspect]
     Indication: HER-2 POSITIVE BREAST CANCER
     Dosage: 2 DOSE
     Route: 042
     Dates: start: 20140501, end: 20140501
  2. PERJETA [Suspect]
     Dosage: INTERMITTENT OVER 30 MINUTES
     Route: 042
     Dates: start: 20140522, end: 20140522
  3. HERCEPTIN [Suspect]
     Indication: HER-2 POSITIVE BREAST CANCER
     Dosage: LAST DOSE ON 23/MAY/2014
     Route: 065
     Dates: start: 20140501
  4. CARBOPLATIN [Concomitant]
     Dosage: LAST DOSE ON 23/MAY/2014
     Route: 065
     Dates: start: 20140501
  5. DOCETAXEL [Concomitant]
     Dosage: LAST DOSE ON 23/MAY/2014
     Route: 065
     Dates: start: 20140501
  6. DEXAMETHASONE [Concomitant]
     Dosage: AS DIRECTED
     Route: 048
     Dates: start: 20140430
  7. DEXAMETHASONE SODIUM PHOSPHATE [Concomitant]
     Dosage: LAST DOSE ON 23/MAY/2014
     Route: 065
     Dates: start: 20140501
  8. DIPHENOXYLATE/ATROPINE [Concomitant]
     Route: 065
     Dates: start: 20140509
  9. ONDANSETRON HCL [Concomitant]
     Route: 065
     Dates: start: 20140430
  10. PALONOSETRON HYDROCHLORIDE [Concomitant]
     Dosage: LAST DOSE ON 23/MAY/2014
     Route: 065
     Dates: start: 20140501
  11. PEGFILGRASTIM [Concomitant]
     Dosage: LAST DOSE ON 27/MAY/2014
     Route: 065
     Dates: start: 20140502
  12. POTASSIUM CHLORIDE, CONTROLLED RELEASE [Concomitant]
     Route: 048
     Dates: start: 20140430
  13. POTASSIUM CHLORIDE, CONTROLLED RELEASE [Concomitant]
     Dosage: DAILY SHORT OVER 2 HOURS FOR A DAY?LAST DOSE 01/MAY/2014
     Route: 042
     Dates: start: 20140501
  14. PROCHLORPERAZINE MALEATE [Concomitant]
     Dosage: 1 TABLET EVERY 4-6 HOURS PRN
     Route: 048
     Dates: start: 20140430
  15. RANITIDINE HCL [Concomitant]
     Dosage: LAST DOSE ON 23/MAY/2014S
     Route: 065
     Dates: start: 20140501
  16. SODIUM CHLORIDE [Concomitant]
     Dosage: LAST DOSE ON 27/MAY/2014
     Route: 065
     Dates: start: 20140501
  17. HYDROCHLOROTHIAZIDE [Concomitant]
     Route: 048
     Dates: start: 20140430
  18. LOPERAMIDE HCL [Concomitant]
     Route: 048
  19. LOPERAMIDE HCL [Concomitant]
     Dosage: LAST DOSE ON 08/MAY/2014
     Route: 048
     Dates: start: 20140508
  20. MOTRIN IB [Concomitant]
     Route: 048
     Dates: start: 20140430
  21. PERCOCET [Concomitant]
     Dosage: 5-325MG
     Route: 048
     Dates: start: 20140430
  22. ZOFRAN [Concomitant]
     Route: 048
     Dates: start: 20140430
  23. CLONIDINE HCL [Concomitant]
     Dosage: LAST DOSE ON SAME DAY
     Route: 048
     Dates: start: 20140501
  24. DIPHENHYDRAMINE HCL [Concomitant]
     Dosage: DAILY PUSH OVER 2 MINUTES FOR 1 DAY?LAST DOSE ON SAME DAY
     Route: 042
     Dates: start: 20140522
  25. MAGNESIUM SULPHATE [Concomitant]
     Dosage: DAILY SHORT OVER 2 HOURS FOR 1 DAY IN NS 100 ML
     Route: 042
  26. METHYL PREDNISOLONE SODIUM SUCCINATE [Concomitant]
     Dosage: DAILY PUSH OVER 1 MINUTES FOR 1 DAY?LAST DOSE ON SAME DAY
     Route: 042
     Dates: start: 20140522

REACTIONS (11)
  - Blood pressure decreased [Recovered/Resolved]
  - Dyspnoea [Recovered/Resolved]
  - Pharyngeal oedema [Recovered/Resolved]
  - Chest discomfort [Recovered/Resolved]
  - Nausea [Unknown]
  - Urticaria [Recovered/Resolved]
  - Rash [Recovered/Resolved]
  - Tachycardia [Unknown]
  - Hypertension [Unknown]
  - Swollen tongue [Recovered/Resolved]
  - Vomiting [Unknown]
